FAERS Safety Report 6073158-9 (Version None)
Quarter: 2009Q1

REPORT INFORMATION
  Report Type: 
  Country: None (occurrence: None)
  Receive Date: 20090206
  Receipt Date: 20090126
  Transmission Date: 20090719
  Serious: Yes (Other)
  Sender: FDA-Public Use
  Company Number: 2008NL0359

PATIENT
  Age: 10 Year
  Sex: Male

DRUGS (1)
  1. ORFADIN [Suspect]
     Indication: TYROSINAEMIA
     Dosage: 0.89 MG/KG, ORAL
     Route: 048
     Dates: start: 19970101

REACTIONS (3)
  - COGNITIVE DISORDER [None]
  - DEVELOPMENTAL DELAY [None]
  - EPILEPSY [None]
